FAERS Safety Report 21057311 (Version 2)
Quarter: 2022Q3

REPORT INFORMATION
  Report Type: Report from Study
  Country: CA (occurrence: CA)
  Receive Date: 20220708
  Receipt Date: 20220803
  Transmission Date: 20221027
  Serious: Yes (Other)
  Sender: FDA-Public Use
  Company Number: CA-PFIZER INC-2020108907

PATIENT
  Age: 22 Year
  Sex: Male
  Weight: 64.3 kg

DRUGS (7)
  1. ABROCITINIB [Suspect]
     Active Substance: ABROCITINIB
     Indication: Dermatitis atopic
     Dosage: 100 MG, DAILY
     Route: 048
     Dates: start: 20191226, end: 20200311
  2. BETAMETHASONE VALERATE [Concomitant]
     Active Substance: BETAMETHASONE VALERATE
     Indication: Dermatitis atopic
     Dosage: 0.1 %, AS NEEDED
     Route: 061
     Dates: start: 20190805
  3. PREDNISONE [Concomitant]
     Active Substance: PREDNISONE
     Indication: Asthma
     Dosage: 50 MG, 1X/DAY
     Route: 048
     Dates: start: 20200128, end: 20200221
  4. METHYLPREDNISOLONE [Concomitant]
     Active Substance: METHYLPREDNISOLONE
     Indication: Asthma
     Dosage: 125 MG, ONCE
     Route: 042
     Dates: start: 20200128, end: 20200128
  5. HYDROCORTISONE [Concomitant]
     Active Substance: HYDROCORTISONE
     Indication: Dermatitis atopic
     Dosage: 1%, AS NEEDED
     Route: 061
     Dates: start: 20190805
  6. COMBIVENT [Concomitant]
     Active Substance: ALBUTEROL SULFATE\IPRATROPIUM BROMIDE
     Indication: Asthma
     Dosage: 2 PUFFS, [IPRATROPIUM BROMIDE 20 MCG]/[SALBUTAMOL SULFATE 100 MCG], AS NEEDED
     Route: 055
     Dates: start: 2017
  7. CETIRIZINE HYDROCHLORIDE [Concomitant]
     Active Substance: CETIRIZINE HYDROCHLORIDE
     Indication: Dermatitis atopic
     Dosage: 20 MG, QOD
     Route: 048
     Dates: start: 20191209

REACTIONS (2)
  - Eczema herpeticum [Recovered/Resolved]
  - Impetigo [Recovered/Resolved]

NARRATIVE: CASE EVENT DATE: 20200304
